FAERS Safety Report 8358488-X (Version None)
Quarter: 2012Q2

REPORT INFORMATION
  Report Type: 
  Country: None (occurrence: None)
  Receive Date: 20120514
  Receipt Date: 20120510
  Transmission Date: 20120825
  Serious: Yes (Hospitalization, Other)
  Sender: FDA-Public Use
  Company Number: US-PFIZER INC-2012091389

PATIENT
  Sex: Female
  Weight: 88.435 kg

DRUGS (3)
  1. MELOXICAM [Concomitant]
     Indication: ARTHRITIS
     Dosage: UNK
  2. CRESTOR [Concomitant]
     Indication: BLOOD CHOLESTEROL INCREASED
     Dosage: UNK
  3. LYRICA [Suspect]
     Indication: FIBROMYALGIA
     Dosage: 150 MG, 2X/DAY
     Route: 048
     Dates: start: 20110801, end: 20120304

REACTIONS (3)
  - GASTRIC DISORDER [None]
  - CYSTITIS [None]
  - ENTEROCOLITIS INFECTIOUS [None]
